FAERS Safety Report 4351534-X (Version None)
Quarter: 2004Q2

REPORT INFORMATION
  Report Type: 
  Country: None (occurrence: None)
  Receive Date: 20040428
  Receipt Date: 20040414
  Transmission Date: 20050107
  Serious: Yes (Other)
  Sender: FDA-Public Use
  Company Number: USA040465051

PATIENT
  Age: 71 Year
  Sex: Male

DRUGS (6)
  1. HUMALOG MIX 75/25 [Suspect]
     Indication: DIABETES MELLITUS NON-INSULIN-DEPENDENT
     Dosage: 65 U DAY
  2. COLCHICINE [Concomitant]
  3. LOVASTATIN [Concomitant]
  4. LASIX [Concomitant]
  5. DILTIAZEM [Concomitant]
  6. CLONIDINE HCL [Concomitant]

REACTIONS (1)
  - RENAL FAILURE CHRONIC [None]
